FAERS Safety Report 8244149-4 (Version None)
Quarter: 2012Q1

REPORT INFORMATION
  Report Type: 
  Country: None (occurrence: None)
  Receive Date: 20120329
  Receipt Date: 20120321
  Transmission Date: 20120608
  Serious: Yes (Hospitalization)
  Sender: FDA-Public Use
  Company Number: FR-MERCK-1203USA02956

PATIENT
  Age: 79 Year
  Sex: Female

DRUGS (2)
  1. SINEMET [Suspect]
     Indication: PARKINSON'S DISEASE
     Route: 048
     Dates: start: 20110629
  2. SINEMET [Suspect]
     Route: 065
     Dates: start: 20110629

REACTIONS (2)
  - AGGRESSION [None]
  - HALLUCINATION, VISUAL [None]
